FAERS Safety Report 9723133 (Version 2)
Quarter: 2014Q1

REPORT INFORMATION
  Report Type: Spontaneous
  Country: FR (occurrence: None)
  Receive Date: 20131126
  Receipt Date: 20140326
  Transmission Date: 20141002
  Serious: Yes (Hospitalization, Other)
  Sender: FDA-Public Use
  Company Number: 2013FR002837

PATIENT
  Age: 71 Year
  Sex: Male

DRUGS (1)
  1. PONATINIB [Suspect]
     Indication: CHRONIC MYELOID LEUKAEMIA
     Route: 048
     Dates: start: 20121227, end: 201303

REACTIONS (8)
  - Myocardial infarction [None]
  - Thrombocytopenia [None]
  - Cardiac failure [None]
  - Hypertension [None]
  - Acute pulmonary oedema [None]
  - Ventricular hypokinesia [None]
  - Left atrial dilatation [None]
  - Myocardial ischaemia [None]
